FAERS Safety Report 8807245 (Version 1)
Quarter: 2012Q4

REPORT INFORMATION
  Report Type: Report from Study
  Country: US (occurrence: US)
  Receive Date: 20120925
  Receipt Date: 20120925
  Transmission Date: 20130627
  Serious: Yes (Other)
  Sender: FDA-Public Use
  Company Number: US-ABBOTT-12P-163-0981271-00

PATIENT
  Age: 60 Year
  Sex: Female

DRUGS (7)
  1. HUMIRA [Suspect]
     Indication: RHEUMATOID ARTHRITIS
     Dates: start: 2004
  2. VITAMIN B 12 [Concomitant]
     Indication: PRODUCT USED FOR UNKNOWN INDICATION
     Dosage: 1000 mg in 1 ml injection
  3. DIAZEPAM [Concomitant]
     Indication: ANXIOLYTIC THERAPY
  4. DIAZEPAM [Concomitant]
     Indication: MUSCLE SPASMS
  5. ESTROGEN [Concomitant]
     Indication: PRODUCT USED FOR UNKNOWN INDICATION
     Dosage: patch
  6. MULTIVITAMIN [Concomitant]
     Indication: PRODUCT USED FOR UNKNOWN INDICATION
  7. LORTAB [Concomitant]
     Indication: INTERVERTEBRAL DISC DISORDER
     Dosage: 5-10 mg

REACTIONS (15)
  - Shoulder operation [Not Recovered/Not Resolved]
  - Sinusitis [Recovered/Resolved]
  - Arthrodesis [Unknown]
  - Bone operation [Not Recovered/Not Resolved]
  - Eye infection bacterial [Not Recovered/Not Resolved]
  - Tooth abscess [Unknown]
  - Sinusitis [Unknown]
  - Pyrexia [Unknown]
  - Chills [Unknown]
  - Oropharyngeal pain [Unknown]
  - Night sweats [Unknown]
  - Arthralgia [Unknown]
  - Oropharyngeal pain [Unknown]
  - Lymphadenopathy [Unknown]
  - Mobility decreased [Unknown]
